FAERS Safety Report 6274969-7 (Version None)
Quarter: 2009Q3

REPORT INFORMATION
  Report Type: 
  Country: None (occurrence: None)
  Receive Date: 20090717
  Receipt Date: 20090706
  Transmission Date: 20100115
  Serious: Yes (Death)
  Sender: FDA-Public Use
  Company Number: CLOF-1000625

PATIENT
  Sex: Female

DRUGS (1)
  1. CLOLAR [Suspect]
     Indication: ACUTE LEUKAEMIA

REACTIONS (1)
  - DEATH [None]
